FAERS Safety Report 8333115-6 (Version None)
Quarter: 2012Q2

REPORT INFORMATION
  Report Type: 
  Country: None (occurrence: None)
  Receive Date: 20120503
  Receipt Date: 20120502
  Transmission Date: 20120825
  Serious: Yes (Hospitalization, Other)
  Sender: FDA-Public Use
  Company Number: PHFR2012IE001057

PATIENT
  Sex: Male

DRUGS (10)
  1. ASPIRIN [Concomitant]
     Dosage: 75 MG, UNK
     Route: 048
  2. CLOZARIL [Suspect]
     Dosage: 100MG MANE 175MG NOCTE
     Route: 048
  3. ATORVASTATIN CALCIUM [Concomitant]
     Dosage: 50 MG, UNK
     Route: 048
  4. LANSOPRAZOLE [Concomitant]
     Dosage: 30 MG, UNK
     Route: 048
  5. VENLAFAXINE [Concomitant]
     Dosage: 75 MG, UNK
     Route: 048
  6. CLOZARIL [Suspect]
     Indication: SCHIZOPHRENIA
     Dosage: 150 MG, UNK
     Route: 048
     Dates: start: 20111216
  7. RAMIPRIL [Concomitant]
     Dosage: 2.5 G, UNK
     Route: 048
  8. CLOZARIL [Suspect]
     Dosage: 175 MG, UNK
     Route: 048
     Dates: end: 20120201
  9. FUROSEMIDE [Concomitant]
     Dosage: 20 MG, UNK
     Route: 048
  10. CLOPIDOGREL [Concomitant]
     Dosage: 75 MG, UNK
     Route: 048

REACTIONS (4)
  - CARDIAC DISORDER [None]
  - DYSPNOEA [None]
  - CHEST PAIN [None]
  - MYOCARDIAL INFARCTION [None]
